FAERS Safety Report 24916356 (Version 1)
Quarter: 2025Q1

REPORT INFORMATION
  Report Type: Spontaneous
  Country: US (occurrence: None)
  Receive Date: 20250131
  Receipt Date: 20250131
  Transmission Date: 20250409
  Serious: Yes (Death)
  Sender: FDA-CTU
  Company Number: None

PATIENT
  Age: 91 Year
  Sex: Male
  Weight: 42.35 kg

DRUGS (2)
  1. CYCLOPHOSPHAMIDE [Suspect]
     Active Substance: CYCLOPHOSPHAMIDE
     Indication: Thrombocytopenia
     Dosage: FREQUENCY : DAILY;?
     Route: 048
     Dates: start: 2023, end: 20250131
  2. PREDNISONE [Concomitant]
     Active Substance: PREDNISONE

REACTIONS (1)
  - Death [None]

NARRATIVE: CASE EVENT DATE: 20250131
